FAERS Safety Report 6339022-2 (Version None)
Quarter: 2009Q3

REPORT INFORMATION
  Report Type: 
  Country: None (occurrence: None)
  Receive Date: 20090903
  Receipt Date: 20090805
  Transmission Date: 20100115
  Serious: No
  Sender: FDA-Public Use
  Company Number: US-BAYER-200913128BCC

PATIENT
  Age: 90 Year
  Sex: Male
  Weight: 68 kg

DRUGS (13)
  1. ALEVE [Suspect]
     Indication: ARTHRITIS
     Dosage: TOTAL DAILY DOSE: 2 DF  UNIT DOSE: 1 DF
     Route: 048
     Dates: start: 20090801, end: 20090803
  2. ALEVE [Suspect]
     Dosage: TOTAL DAILY DOSE: 2 DF  UNIT DOSE: 1 DF
     Route: 048
     Dates: start: 20090805
  3. MULTIVITAMIN [Concomitant]
     Route: 065
  4. TRIAMTERENE [Concomitant]
     Route: 065
  5. VITAMIN-MINERAL COMPOUND TAB [Concomitant]
     Route: 065
  6. ASPIRIN KIRKLAND BRAND [Concomitant]
     Route: 065
  7. OMEPRAZOLE [Concomitant]
     Route: 065
  8. TERAZOSIN [Concomitant]
     Route: 065
  9. SIMVASTATIN [Concomitant]
     Route: 065
  10. POTASSIUM CHLORIDE [Concomitant]
     Route: 065
  11. ATENOLOL [Concomitant]
     Route: 065
  12. SALCALATE [Concomitant]
     Route: 065
  13. VITAMIN B-12 [Concomitant]
     Route: 065

REACTIONS (1)
  - DIARRHOEA [None]
